FAERS Safety Report 20091884 (Version 5)
Quarter: 2022Q4

REPORT INFORMATION
  Report Type: Spontaneous
  Country: JP (occurrence: JP)
  Receive Date: 20211119
  Receipt Date: 20221128
  Transmission Date: 20230112
  Serious: Yes (Other)
  Sender: FDA-Public Use
  Company Number: JP-BRISTOL-MYERS SQUIBB COMPANY-BMS-2021-065621

PATIENT
  Age: 72 Year
  Sex: Male
  Weight: 56.3 kg

DRUGS (33)
  1. YERVOY [Suspect]
     Active Substance: IPILIMUMAB
     Indication: Metastatic renal cell carcinoma
     Dosage: 65 MILLIGRAM
     Route: 041
     Dates: start: 20201216, end: 20210428
  2. YERVOY [Suspect]
     Active Substance: IPILIMUMAB
     Dosage: 65 MILLIGRAM
     Route: 041
     Dates: start: 20210331, end: 20210420
  3. YERVOY [Suspect]
     Active Substance: IPILIMUMAB
     Dosage: 65 MILLIGRAM
     Route: 041
     Dates: start: 20210428, end: 20210518
  4. OPDIVO [Suspect]
     Active Substance: NIVOLUMAB
     Indication: Metastatic renal cell carcinoma
     Dosage: 240 MILLIGRAM
     Route: 041
     Dates: start: 20201216, end: 20210105
  5. OPDIVO [Suspect]
     Active Substance: NIVOLUMAB
     Dosage: 240 MILLIGRAM
     Route: 041
     Dates: start: 20210331, end: 20210420
  6. OPDIVO [Suspect]
     Active Substance: NIVOLUMAB
     Dosage: 240 MILLIGRAM
     Route: 041
     Dates: start: 20210428, end: 20210518
  7. OPDIVO [Suspect]
     Active Substance: NIVOLUMAB
     Dosage: UNK
     Route: 041
     Dates: start: 20211104, end: 20211117
  8. OPDIVO [Suspect]
     Active Substance: NIVOLUMAB
     Dosage: UNK
     Route: 041
     Dates: start: 20211118, end: 20211201
  9. OPDIVO [Suspect]
     Active Substance: NIVOLUMAB
     Dosage: UNK
     Route: 041
     Dates: start: 20211202, end: 20211215
  10. CORTRIL [Concomitant]
     Active Substance: HYDROCORTISONE
     Indication: Hyponatraemia
     Dosage: AFTER BREKFAST 1.5TAB, AFTER DINNER 1TAB
     Route: 048
     Dates: end: 20210501
  11. CORTRIL [Concomitant]
     Active Substance: HYDROCORTISONE
     Indication: Hyperkalaemia
     Dosage: 40 MILLIGRAM, QD
     Route: 048
     Dates: start: 20210608
  12. CORTRIL [Concomitant]
     Active Substance: HYDROCORTISONE
     Dosage: 30 MILLIGRAM, QD
     Route: 048
     Dates: start: 20210630
  13. CORTRIL [Concomitant]
     Active Substance: HYDROCORTISONE
     Dosage: 25 MILLIGRAM
     Route: 048
  14. CORTRIL [Concomitant]
     Active Substance: HYDROCORTISONE
     Dosage: ADMINISTRATED BY 2-0-1.0, 2 TABLET AFTER BREAKFAST,1 TABLET AFTER DINNER
     Route: 048
  15. CORTRIL [Concomitant]
     Active Substance: HYDROCORTISONE
     Dosage: 25 MILLIGRAM
     Route: 048
  16. MINIRIN [Concomitant]
     Active Substance: DESMOPRESSIN ACETATE
     Indication: Product used for unknown indication
     Route: 048
  17. MINIRIN [Concomitant]
     Active Substance: DESMOPRESSIN ACETATE
     Route: 048
     Dates: start: 20210608
  18. MINIRIN [Concomitant]
     Active Substance: DESMOPRESSIN ACETATE
     Dosage: UNK UNK, Q12H
     Route: 048
     Dates: start: 20210618
  19. MINIRIN [Concomitant]
     Active Substance: DESMOPRESSIN ACETATE
     Dosage: UNK, Q12H
     Route: 048
     Dates: start: 20210629
  20. MINIRIN [Concomitant]
     Active Substance: DESMOPRESSIN ACETATE
     Route: 048
  21. PREDONINE [Concomitant]
     Active Substance: PREDNISOLONE
     Indication: Immune-mediated enterocolitis
     Dosage: 30 MILLIGRAM, QD
     Route: 048
     Dates: start: 20210502, end: 20210506
  22. PREDONINE [Concomitant]
     Active Substance: PREDNISOLONE
     Dosage: 60 MILLIGRAM, QD
     Route: 048
     Dates: start: 20210507, end: 20210507
  23. PREDONINE [Concomitant]
     Active Substance: PREDNISOLONE
     Dosage: 50 MILLIGRAM, QD
     Route: 048
     Dates: start: 20210508
  24. PREDONINE [Concomitant]
     Active Substance: PREDNISOLONE
     Dosage: 60 MILLIGRAM, QD
     Route: 065
     Dates: start: 20210601
  25. PREDONINE [Concomitant]
     Active Substance: PREDNISOLONE
     Dosage: 15 MILLIGRAM, QD
     Route: 065
     Dates: start: 20210611
  26. LEVOTHYROXINE SODIUM [Concomitant]
     Active Substance: LEVOTHYROXINE SODIUM
     Indication: Product used for unknown indication
     Dosage: 50 MICROGRAM, QD AFTER BREAKFAST
     Route: 048
  27. ALLOPURINOL [Concomitant]
     Active Substance: ALLOPURINOL
     Indication: Product used for unknown indication
     Dosage: 100 MILLIGRAM, QD AFTER BREAKFAST
     Route: 048
  28. BONALON [Concomitant]
     Active Substance: ALENDRONATE SODIUM
     Indication: Product used for unknown indication
     Dosage: 35 MILLIGRAM, QWK
     Route: 048
  29. NEXIUM [Concomitant]
     Active Substance: ESOMEPRAZOLE MAGNESIUM
     Indication: Product used for unknown indication
     Dosage: 20 MILLIGRAM, QD BEFORE BEDTIME
     Route: 048
  30. AMLODIPINE [Concomitant]
     Active Substance: AMLODIPINE BESYLATE
     Indication: Product used for unknown indication
     Dosage: 5 MILLIGRAM, QD AFTER BREAKFAST
     Route: 048
  31. SODIUM FERROUS CITRATE [Concomitant]
     Active Substance: SODIUM FERROUS CITRATE
     Indication: Product used for unknown indication
     Dosage: 50 MILLIGRAM, QD-BEFORE BEDTIME
     Route: 048
  32. ALENDRONATE [Concomitant]
     Active Substance: ALENDRONATE SODIUM
     Indication: Product used for unknown indication
     Dosage: 1 DOSAGE FORM, QWK, EVERY MONDAY AFTER WAKE UP
     Route: 048
  33. VALGANCICLOVIR [Concomitant]
     Active Substance: VALGANCICLOVIR
     Indication: Product used for unknown indication
     Dosage: 450 MILLIGRAM, QD AFTER BREAKFAST
     Route: 048

REACTIONS (2)
  - Immune-mediated enterocolitis [Recovered/Resolved]
  - Clostridium difficile colitis [Recovering/Resolving]

NARRATIVE: CASE EVENT DATE: 20210501
